FAERS Safety Report 15468160 (Version 2)
Quarter: 2021Q1

REPORT INFORMATION
  Report Type: Report from Study
  Country: DE (occurrence: DE)
  Receive Date: 20181005
  Receipt Date: 20210310
  Transmission Date: 20210419
  Serious: Yes (Congenital Anomaly, Other)
  Sender: FDA-Public Use
  Company Number: DE-AUROBINDO-AUR-APL-2018-048735

PATIENT
  Sex: Female

DRUGS (7)
  1. VALSARTAN. [Suspect]
     Active Substance: VALSARTAN
     Indication: HYPERTENSION
     Dosage: 40 MILLIGRAM, ONCE A DAY
     Route: 064
  2. FLUVASTATIN [Concomitant]
     Active Substance: FLUVASTATIN SODIUM
     Indication: HYPERTENSION
     Dosage: UNK (GESTATION PERIOD AT EXPOSURE FROM 0 TO WEEK 9 OF GESTATION)
     Route: 064
  3. FUROSEMIDE. [Concomitant]
     Active Substance: FUROSEMIDE
     Indication: HYPERTENSION
     Dosage: UNK (GESTATION PERIOD AT EXPOSURE FROM 0 TO WEEK 9 OF GESTATION)
     Route: 064
  4. PREDNISOLONE. [Concomitant]
     Active Substance: PREDNISOLONE
     Indication: HYPERTENSION
     Dosage: 5 MILLIGRAM, UNK (GESTATION PERIOD AT EXPOSURE FROM 0 TO WEEK 32 PLUS DAY 1 OF GESTA)
     Route: 064
  5. INSULIN [Concomitant]
     Active Substance: INSULIN NOS
     Indication: HYPERTENSION
     Dosage: UNK (GESTATION PERIOD AT EXPOSURE FROM 0 TO WEEK 32 PLUS DAY 1 OF GESTA)
     Route: 064
  6. CYCLOSPORINE. [Concomitant]
     Active Substance: CYCLOSPORINE
     Indication: HYPERTENSION
     Dosage: UNK (GESTATION PERIOD AT EXPOSURE FROM 0 TO WEEK 32 PLUS DAY 1 OF GESTA)
     Route: 064
  7. ESOMEPRAZOLE. [Concomitant]
     Active Substance: ESOMEPRAZOLE MAGNESIUM
     Indication: HYPERTENSION
     Dosage: UNK (GESTATION PERIOD AT EXPOSURE FROM 0 TO WEEK 9 OF GESTATION)
     Route: 064

REACTIONS (6)
  - Atrial septal defect [Unknown]
  - Accidental exposure to product [Unknown]
  - Foetal exposure during pregnancy [Unknown]
  - Bradycardia neonatal [Unknown]
  - Pulmonary artery stenosis [Unknown]
  - Neonatal seizure [Unknown]
